FAERS Safety Report 21703497 (Version 4)
Quarter: 2024Q1

REPORT INFORMATION
  Report Type: Spontaneous
  Country: SG (occurrence: None)
  Receive Date: 20221209
  Receipt Date: 20240125
  Transmission Date: 20240410
  Serious: Yes (Other)
  Sender: FDA-Public Use
  Company Number: SG-ROCHE-3167381

PATIENT
  Sex: Female
  Weight: 46 kg

DRUGS (3)
  1. PERJETA [Suspect]
     Active Substance: PERTUZUMAB
     Indication: Breast cancer
     Route: 065
  2. HERCEPTIN [Suspect]
     Active Substance: TRASTUZUMAB
     Indication: Breast cancer
     Route: 065
  3. HERCEPTIN [Suspect]
     Active Substance: TRASTUZUMAB
     Route: 065
     Dates: start: 20220901, end: 20230630

REACTIONS (16)
  - Disease recurrence [Unknown]
  - Discomfort [Unknown]
  - Cough [Unknown]
  - Oropharyngeal pain [Unknown]
  - Brain neoplasm [Unknown]
  - Breast cancer metastatic [Unknown]
  - Pyrexia [Unknown]
  - COVID-19 [Unknown]
  - Rhinorrhoea [Unknown]
  - Headache [Unknown]
  - Fatigue [Unknown]
  - Immune system disorder [Unknown]
  - Hypersensitivity [Unknown]
  - Asthenia [Unknown]
  - Onychoclasis [Unknown]
  - Hypoaesthesia [Unknown]
